FAERS Safety Report 24636400 (Version 3)
Quarter: 2024Q4

REPORT INFORMATION
  Report Type: Report from Study
  Country: US (occurrence: US)
  Receive Date: 20241119
  Receipt Date: 20241205
  Transmission Date: 20250115
  Serious: Yes (Hospitalization)
  Sender: SANDOZ
  Company Number: US-002147023-NVSC2024US218029

PATIENT
  Age: 63 Year
  Sex: Male
  Weight: 77.2 kg

DRUGS (8)
  1. AZITHROMYCIN [Suspect]
     Active Substance: AZITHROMYCIN
     Indication: Mycobacterium abscessus infection
     Dosage: 500 MG (04-OCT-2024)
     Route: 048
     Dates: end: 20241010
  2. AZITHROMYCIN [Suspect]
     Active Substance: AZITHROMYCIN
     Dosage: 500 MG (16-OCT-2023)
     Route: 048
     Dates: end: 20241010
  3. CLOFAZIMINE [Suspect]
     Active Substance: CLOFAZIMINE
     Indication: Mycobacterium abscessus infection
     Dosage: 100 MG, QD (04-OCT-2023)
     Route: 048
     Dates: end: 20241010
  4. CLOFAZIMINE [Suspect]
     Active Substance: CLOFAZIMINE
     Dosage: 100 MG, QD (13-OCT-2023)
     Route: 048
     Dates: end: 20241010
  5. ETHAMBUTOL [Concomitant]
     Active Substance: ETHAMBUTOL HYDROCHLORIDE
     Indication: Mycobacterium abscessus infection
     Dosage: 1200 MG
     Route: 048
     Dates: start: 20231016, end: 20241016
  6. ETHAMBUTOL [Concomitant]
     Active Substance: ETHAMBUTOL HYDROCHLORIDE
     Dosage: 1200 MG
     Route: 048
     Dates: start: 20241004, end: 20241010
  7. RIFAMPIN [Concomitant]
     Active Substance: RIFAMPIN
     Indication: Mycobacterium abscessus infection
     Dosage: 600 MG
     Route: 048
     Dates: start: 20231016, end: 20241016
  8. RIFAMPIN [Concomitant]
     Active Substance: RIFAMPIN
     Dosage: 600 MG
     Route: 048
     Dates: start: 20241004, end: 20241010

REACTIONS (6)
  - Confusional state [Recovering/Resolving]
  - Chills [Recovered/Resolved]
  - Pyrexia [Recovered/Resolved]
  - Abdominal pain [Not Recovered/Not Resolved]
  - Cerebral microhaemorrhage [Not Recovered/Not Resolved]
  - Headache [Not Recovered/Not Resolved]

NARRATIVE: CASE EVENT DATE: 20240401
